FAERS Safety Report 8789234 (Version 1)
Quarter: 2012Q4

REPORT INFORMATION
  Report Type: Spontaneous
  Country: US (occurrence: None)
  Receive Date: 20120910
  Receipt Date: 20120910
  Transmission Date: 20130627
  Serious: Yes (Other)
  Sender: FDA-Public Use
  Company Number: None

PATIENT
  Age: 14 Year
  Sex: Male
  Weight: 71.67 kg

DRUGS (2)
  1. LIDODERM PATCH [Suspect]
     Indication: DISLOCATED SHOULDER
     Dosage: 1 patch
     Dates: start: 20120827, end: 20120830
  2. LIDODERM PATCH [Suspect]
     Indication: PAIN MANAGEMENT
     Dosage: 1 patch
     Dates: start: 20120827, end: 20120830

REACTIONS (3)
  - Hypoaesthesia [None]
  - Hypersensitivity [None]
  - Nerve injury [None]
